FAERS Safety Report 14302357 (Version 1)
Quarter: 2017Q4

REPORT INFORMATION
  Report Type: Spontaneous
  Country: US (occurrence: US)
  Receive Date: 20171218
  Receipt Date: 20171218
  Transmission Date: 20180321
  Serious: No
  Sender: FDA-Public Use
  Company Number: None

PATIENT
  Age: 64 Year
  Sex: Female

DRUGS (1)
  1. GLEEVEC [Suspect]
     Active Substance: IMATINIB MESYLATE

REACTIONS (10)
  - Disease progression [None]
  - Fall [None]
  - Abdominal pain [None]
  - Fatigue [None]
  - Dizziness [None]
  - Abdominal distension [None]
  - Dysgeusia [None]
  - Appetite disorder [None]
  - Vision blurred [None]
  - Hair colour changes [None]

NARRATIVE: CASE EVENT DATE: 20171218
